FAERS Safety Report 22164275 (Version 1)
Quarter: 2023Q2

REPORT INFORMATION
  Report Type: Spontaneous
  Country: CN (occurrence: CN)
  Receive Date: 20230403
  Receipt Date: 20230403
  Transmission Date: 20230722
  Serious: Yes (Hospitalization)
  Sender: FDA-Public Use
  Company Number: None

PATIENT
  Age: 49 Year
  Sex: Female
  Weight: 50 kg

DRUGS (4)
  1. CYCLOPHOSPHAMIDE [Suspect]
     Active Substance: CYCLOPHOSPHAMIDE
     Indication: Breast cancer female
     Dosage: 0.9 G, QD, DILUTED WITH 50 ML OF 0.9% SODIUM CHLORIDE
     Route: 041
     Dates: start: 20230301, end: 20230301
  2. SODIUM CHLORIDE [Suspect]
     Active Substance: SODIUM CHLORIDE
     Indication: Medication dilution
     Dosage: 50 ML, QD, USED TO DILUTE 0.9 G CYCLOPHOSPHAMIDE
     Route: 041
     Dates: start: 20230301, end: 20230301
  3. DEXTROSE MONOHYDRATE [Suspect]
     Active Substance: DEXTROSE MONOHYDRATE
     Indication: Medication dilution
     Dosage: 250 ML, QD, USED TO DILUTE 48 MG DOXORUBICIN HYDROCHLORIDE LIPOSOME
     Route: 041
     Dates: start: 20230301, end: 20230301
  4. DOXORUBICIN HYDROCHLORIDE [Suspect]
     Active Substance: DOXORUBICIN HYDROCHLORIDE
     Indication: Breast cancer female
     Dosage: 48 MG, QD, DILUTED WITH 250 ML OF 5% GLUCOSE
     Route: 041
     Dates: start: 20230301, end: 20230301

REACTIONS (2)
  - Hepatic function abnormal [Recovered/Resolved]
  - Hepatic enzyme increased [Recovered/Resolved]

NARRATIVE: CASE EVENT DATE: 20230321
